FAERS Safety Report 16745839 (Version 1)
Quarter: 2019Q3

REPORT INFORMATION
  Report Type: Spontaneous
  Country: US (occurrence: US)
  Receive Date: 20190827
  Receipt Date: 20190827
  Transmission Date: 20191005
  Serious: Yes (Death)
  Sender: FDA-Public Use
  Company Number: PHHY2019US198814

PATIENT
  Age: 62 Year
  Sex: Female

DRUGS (3)
  1. INFLIXIMAB [Suspect]
     Active Substance: INFLIXIMAB
     Indication: VENTRICULAR TACHYCARDIA
     Dosage: 5 MG/KG, UNK
     Route: 065
  2. METHYLPREDNISOLONE. [Suspect]
     Active Substance: METHYLPREDNISOLONE
     Indication: VENTRICULAR TACHYCARDIA
     Dosage: 1 MG/KG, UNK
     Route: 042
  3. METHYLPREDNISOLONE. [Suspect]
     Active Substance: METHYLPREDNISOLONE
     Dosage: 2 G, UNK
     Route: 042

REACTIONS (3)
  - Pulmonary embolism [Fatal]
  - Product use in unapproved indication [Unknown]
  - Bacteraemia [Fatal]
